FAERS Safety Report 6651535-2 (Version None)
Quarter: 2010Q1

REPORT INFORMATION
  Report Type: 
  Country: None (occurrence: None)
  Receive Date: 20100325
  Receipt Date: 20100318
  Transmission Date: 20100710
  Serious: Yes (Life-Threatening, Hospitalization, Disabling, Other)
  Sender: FDA-Public Use
  Company Number: A0850883A

PATIENT
  Sex: Female

DRUGS (19)
  1. LAMICTAL CD [Suspect]
     Indication: BIPOLAR DISORDER
     Dosage: 200MG PER DAY
     Route: 048
     Dates: start: 20091001
  2. KLONOPIN [Concomitant]
  3. INVEGA [Concomitant]
  4. SOMA [Concomitant]
  5. LUNESTA [Concomitant]
  6. TRAZODONE HCL [Concomitant]
  7. FENTANYL-75 [Concomitant]
  8. CYMBALTA [Concomitant]
  9. OXYCODONE HCL [Concomitant]
  10. METFORMIN HCL [Concomitant]
  11. ACIPHEX [Concomitant]
  12. IMITREX [Concomitant]
  13. ALBUTEROL [Concomitant]
  14. UNKNOWN MEDICATION [Concomitant]
  15. SYMBICORT [Concomitant]
  16. CORTISONE CREAM [Concomitant]
  17. SULFA [Concomitant]
  18. ZYPREXA [Concomitant]
  19. VICODIN [Concomitant]

REACTIONS (3)
  - DRUG INEFFECTIVE [None]
  - MANIA [None]
  - SUICIDAL IDEATION [None]
